FAERS Safety Report 21635576 (Version 1)
Quarter: 2022Q4

REPORT INFORMATION
  Report Type: Spontaneous
  Country: US (occurrence: US)
  Receive Date: 20221123
  Receipt Date: 20221123
  Transmission Date: 20230113
  Serious: No
  Sender: FDA-Public Use
  Company Number: US-NOVOPROD-946250

PATIENT
  Age: 69 Year
  Sex: Female

DRUGS (1)
  1. NOVOLOG [Suspect]
     Active Substance: INSULIN ASPART
     Indication: Type 1 diabetes mellitus
     Dosage: SLIDING SCALE 5 IN THE MORN 10-15 LUNC AND DINNER, 39 UNITS PER DAY (12, 12,15)
     Route: 058

REACTIONS (4)
  - Visual impairment [Recovered/Resolved]
  - Diabetes mellitus inadequate control [Recovered/Resolved]
  - Device breakage [Unknown]
  - Extra dose administered [Unknown]

NARRATIVE: CASE EVENT DATE: 20220417
